FAERS Safety Report 23328570 (Version 1)
Quarter: 2023Q4

REPORT INFORMATION
  Report Type: Report from Study
  Country: US (occurrence: US)
  Receive Date: 20231221
  Receipt Date: 20231221
  Transmission Date: 20240109
  Serious: Yes (Other)
  Sender: FDA-Public Use
  Company Number: US-ABBVIE-5551219

PATIENT
  Sex: Female

DRUGS (1)
  1. IMBRUVICA [Suspect]
     Active Substance: IBRUTINIB
     Indication: Chronic lymphocytic leukaemia
     Route: 048
     Dates: start: 202309

REACTIONS (5)
  - Surgery [Unknown]
  - Laboratory test abnormal [Unknown]
  - Pain [Unknown]
  - Impaired healing [Unknown]
  - Hypersomnia [Unknown]

NARRATIVE: CASE EVENT DATE: 20230101
